FAERS Safety Report 9240687 (Version 1)
Quarter: 2013Q2

REPORT INFORMATION
  Report Type: Spontaneous
  Country: US (occurrence: US)
  Receive Date: 20130419
  Receipt Date: 20130419
  Transmission Date: 20140414
  Serious: No
  Sender: FDA-Public Use
  Company Number: US-009507513-1304USA007285

PATIENT
  Age: 86 Year
  Sex: Female

DRUGS (7)
  1. JANUVIA [Suspect]
     Indication: TYPE 2 DIABETES MELLITUS
     Dosage: 50 MG, UNK
     Route: 048
     Dates: start: 199804
  2. BENICAR [Concomitant]
  3. WELLBUTRIN [Concomitant]
  4. LEVOTHYROXINE SODIUM [Concomitant]
  5. MELOXICAM [Concomitant]
  6. IRON (UNSPECIFIED) [Concomitant]
  7. PRAVASTATIN SODIUM [Concomitant]

REACTIONS (2)
  - Syncope [Unknown]
  - Dizziness [Unknown]
